FAERS Safety Report 18204928 (Version 2)
Quarter: 2020Q4

REPORT INFORMATION
  Report Type: Spontaneous
  Country: ES (occurrence: ES)
  Receive Date: 20200828
  Receipt Date: 20201106
  Transmission Date: 20210113
  Serious: Yes (Other)
  Sender: FDA-Public Use
  Company Number: ES-JNJFOC-20200835381

PATIENT
  Age: 72 Year
  Sex: Female
  Weight: 93 kg

DRUGS (4)
  1. GLICLAZIDE [Suspect]
     Active Substance: GLICLAZIDE
     Indication: TYPE 2 DIABETES MELLITUS
     Dosage: 3-0-0
     Route: 065
     Dates: start: 20170517
  2. IBUPROFEN. [Suspect]
     Active Substance: IBUPROFEN
     Indication: POLYARTHRITIS
     Dosage: 1-1-1-1
     Route: 065
     Dates: start: 20180527
  3. METFORMIN [Interacting]
     Active Substance: METFORMIN HYDROCHLORIDE
     Indication: TYPE 2 DIABETES MELLITUS
     Dosage: 1-0-1
     Route: 065
     Dates: start: 20170517
  4. ENALAPRILHYDROCHLOROTHIAZIDE [Interacting]
     Active Substance: ENALAPRIL MALEATE\HYDROCHLOROTHIAZIDE
     Indication: PRODUCT USED FOR UNKNOWN INDICATION
     Dosage: 20 MG/12.5 MG. 1 TABLET A DAY
     Route: 065
     Dates: start: 20150207

REACTIONS (13)
  - Arthralgia [Unknown]
  - Oedema peripheral [Unknown]
  - Hyperhidrosis [Unknown]
  - Hypertension [Unknown]
  - Drug interaction [Unknown]
  - Muscle spasms [Unknown]
  - Malaise [Unknown]
  - Renal failure [Unknown]
  - Tremor [Unknown]
  - Dizziness [Unknown]
  - Hypoglycaemia [Unknown]
  - Decreased appetite [Unknown]
  - Diarrhoea [Unknown]
